FAERS Safety Report 19881815 (Version 1)
Quarter: 2021Q3

REPORT INFORMATION
  Report Type: Spontaneous
  Country: AU (occurrence: AU)
  Receive Date: 20210924
  Receipt Date: 20210924
  Transmission Date: 20211014
  Serious: Yes (Hospitalization)
  Sender: FDA-Public Use
  Company Number: AU-PFIZER INC-202101255544

PATIENT
  Age: 55 Year
  Sex: Female

DRUGS (6)
  1. ENCORAFENIB [Suspect]
     Active Substance: ENCORAFENIB
     Dosage: 600 MG, PER DAY
     Route: 065
     Dates: start: 202104
  2. PREDNISONE. [Concomitant]
     Active Substance: PREDNISONE
     Dosage: UNK
     Route: 065
  3. NIVOLUMAB [Concomitant]
     Active Substance: NIVOLUMAB
     Dosage: UNK
     Route: 065
  4. DABRAFENIB [Suspect]
     Active Substance: DABRAFENIB
     Indication: MALIGNANT MELANOMA
     Dosage: UNK
     Route: 065
  5. BINIMETINIB [Suspect]
     Active Substance: BINIMETINIB
     Dosage: 30 MG,  BD 2 DAYS ON AND 5 DAYS OFF
     Route: 065
     Dates: start: 202004
  6. TRAMETINIB [Suspect]
     Active Substance: TRAMETINIB
     Indication: MALIGNANT MELANOMA
     Dosage: UNK
     Route: 065

REACTIONS (2)
  - Pyrexia [Unknown]
  - Anxiety [Unknown]
